FAERS Safety Report 17950105 (Version 1)
Quarter: 2020Q2

REPORT INFORMATION
  Report Type: Spontaneous
  Country: GB (occurrence: GB)
  Receive Date: 20200626
  Receipt Date: 20200626
  Transmission Date: 20200714
  Serious: Yes (Other)
  Sender: FDA-Public Use
  Company Number: NVSC2020GB174203

PATIENT
  Age: 41 Year
  Sex: Female

DRUGS (10)
  1. LEVOTHYROXINE. [Concomitant]
     Active Substance: LEVOTHYROXINE
     Indication: PRODUCT USED FOR UNKNOWN INDICATION
     Dosage: UNK
     Route: 065
  2. OCTREOTIDE ACETATE. [Suspect]
     Active Substance: OCTREOTIDE ACETATE
     Indication: NERVE BLOCK
     Dosage: 6 DF, QD
     Route: 065
  3. PEGVISOMANT [Interacting]
     Active Substance: PEGVISOMANT
     Indication: ACROMEGALY
     Dosage: 2 DF, WEEKLY (2 INJECTIONS PER WEEK)
     Route: 065
  4. OCTREOTIDE ACETATE. [Interacting]
     Active Substance: OCTREOTIDE ACETATE
     Indication: HEADACHE
     Dosage: 4 DF, QD (4 INJECTIONS PER DAY)
     Route: 065
  5. LOPERAMIDE [Concomitant]
     Active Substance: LOPERAMIDE
     Indication: PRODUCT USED FOR UNKNOWN INDICATION
     Dosage: UNK
     Route: 065
  6. VITAMIN D NOS [Concomitant]
     Active Substance: VITAMIN D NOS
     Indication: PRODUCT USED FOR UNKNOWN INDICATION
     Dosage: UNK
     Route: 065
  7. OCTREOTIDE ACETATE. [Interacting]
     Active Substance: OCTREOTIDE ACETATE
     Dosage: 5 DF, QD
     Route: 065
  8. LORATADINE. [Concomitant]
     Active Substance: LORATADINE
     Indication: PRODUCT USED FOR UNKNOWN INDICATION
     Dosage: UNK
     Route: 065
  9. LANREOTIDE [Concomitant]
     Active Substance: LANREOTIDE
     Indication: PRODUCT USED FOR UNKNOWN INDICATION
     Dosage: UNK
     Route: 065
  10. HYDROCORTISONE. [Concomitant]
     Active Substance: HYDROCORTISONE
     Indication: PRODUCT USED FOR UNKNOWN INDICATION
     Dosage: UNK
     Route: 065

REACTIONS (12)
  - Drug ineffective for unapproved indication [Unknown]
  - Fatigue [Unknown]
  - Cholelithiasis [Unknown]
  - Anaphylactic shock [Unknown]
  - Emotional distress [Unknown]
  - Off label use [Unknown]
  - Adrenocortical insufficiency acute [Unknown]
  - Feeling hot [Unknown]
  - Mood swings [Unknown]
  - Premature menopause [Unknown]
  - Temperature regulation disorder [Unknown]
  - Labelled drug-drug interaction medication error [Unknown]
